FAERS Safety Report 5304376-2 (Version None)
Quarter: 2007Q2

REPORT INFORMATION
  Report Type: 
  Country: None (occurrence: None)
  Receive Date: 20070419
  Receipt Date: 20070419
  Transmission Date: 20071010
  Serious: Yes (Other)
  Sender: FDA-Public Use
  Company Number: None

PATIENT
  Age: 46 Year
  Sex: Male
  Weight: 70.3075 kg

DRUGS (2)
  1. VENLAFAXIINE HCL [Suspect]
     Indication: DEPRESSION
     Dosage: 75 MG   HS   PO
     Route: 048
     Dates: start: 20061115, end: 20061129
  2. VENLAFAXIINE HCL [Suspect]
     Indication: DEPRESSION
     Dosage: 75 MG   HS   PO
     Route: 048
     Dates: start: 20070115, end: 20070122

REACTIONS (3)
  - DRUG INEFFECTIVE [None]
  - DRUG WITHDRAWAL SYNDROME [None]
  - THERAPEUTIC RESPONSE UNEXPECTED WITH DRUG SUBSTITUTION [None]
